FAERS Safety Report 7314941-9 (Version None)
Quarter: 2011Q1

REPORT INFORMATION
  Report Type: 
  Country: None (occurrence: None)
  Receive Date: 20110225
  Receipt Date: 20100308
  Transmission Date: 20110831
  Serious: No
  Sender: FDA-Public Use
  Company Number: US-MYLANLABS-2010S1002265

PATIENT
  Age: 19 Year
  Sex: Female
  Weight: 65.77 kg

DRUGS (12)
  1. AMNESTEEM [Suspect]
     Route: 048
     Dates: start: 20090725, end: 20090819
  2. AMNESTEEM [Suspect]
     Route: 048
     Dates: start: 20090801, end: 20100111
  3. AMNESTEEM [Suspect]
     Route: 048
     Dates: start: 20100118, end: 20100206
  4. AMNESTEEM [Suspect]
     Indication: ACNE CYSTIC
     Route: 048
     Dates: start: 20090619, end: 20090724
  5. AMNESTEEM [Suspect]
     Route: 048
     Dates: start: 20090820, end: 20090801
  6. AMNESTEEM [Suspect]
     Route: 048
     Dates: start: 20090801, end: 20100111
  7. AMNESTEEM [Suspect]
     Route: 048
     Dates: start: 20090801, end: 20100111
  8. AMNESTEEM [Suspect]
     Indication: SCAR
     Route: 048
     Dates: start: 20090619, end: 20090724
  9. AMNESTEEM [Suspect]
     Route: 048
     Dates: start: 20090820, end: 20090801
  10. AMNESTEEM [Suspect]
     Route: 048
     Dates: start: 20090725, end: 20090819
  11. AMNESTEEM [Suspect]
     Route: 048
     Dates: start: 20090801, end: 20100111
  12. AMNESTEEM [Suspect]
     Route: 048
     Dates: start: 20100118, end: 20100206

REACTIONS (1)
  - MIGRAINE [None]
